FAERS Safety Report 7128428-X (Version None)
Quarter: 2010Q4

REPORT INFORMATION
  Report Type: 
  Country: None (occurrence: None)
  Receive Date: 20101130
  Receipt Date: 20101125
  Transmission Date: 20110411
  Serious: Yes (Other)
  Sender: FDA-Public Use
  Company Number: JP-PFIZER INC-2010157487

PATIENT
  Age: 40 Year
  Sex: Male

DRUGS (5)
  1. ZITHROMAX [Suspect]
     Indication: PYREXIA
     Dosage: 2 DF, 1X/DAY
     Dates: start: 20101124, end: 20101125
  2. LOXONIN [Concomitant]
     Indication: PYREXIA
  3. MEDICON [Concomitant]
     Indication: PYREXIA
  4. BISOLVON [Concomitant]
     Indication: PYREXIA
  5. DASEN [Concomitant]
     Indication: PYREXIA

REACTIONS (1)
  - SUBCUTANEOUS ABSCESS [None]
